FAERS Safety Report 11982960 (Version 3)
Quarter: 2016Q1

REPORT INFORMATION
  Report Type: Spontaneous
  Country: US (occurrence: US)
  Receive Date: 20160201
  Receipt Date: 20160303
  Transmission Date: 20160526
  Serious: Yes (Hospitalization)
  Sender: FDA-Public Use
  Company Number: US-009507513-1601USA007583

PATIENT
  Age: 63 Year
  Sex: Male
  Weight: 70.9 kg

DRUGS (14)
  1. HUMALOG [Suspect]
     Active Substance: INSULIN LISPRO
     Indication: DIABETES MELLITUS
     Dosage: 15 UNITS, AC, MEALS AND HS CHRONIC
     Route: 058
  2. ALBUTEROL. [Concomitant]
     Active Substance: ALBUTEROL
  3. AGGRENOX [Concomitant]
     Active Substance: ASPIRIN\DIPYRIDAMOLE
  4. COREG [Concomitant]
     Active Substance: CARVEDILOL
  5. DOLOPHINE [Concomitant]
     Active Substance: METHADONE HYDROCHLORIDE
  6. JANUVIA [Suspect]
     Active Substance: SITAGLIPTIN PHOSPHATE
     Dosage: 100 MG, DAILY
     Route: 048
  7. PERCOCET [Concomitant]
     Active Substance: ACETAMINOPHEN\OXYCODONE HYDROCHLORIDE
  8. PRINIVIL [Concomitant]
     Active Substance: LISINOPRIL
  9. LOPRESSOR [Concomitant]
     Active Substance: METOPROLOL TARTRATE
  10. MEVACOR [Concomitant]
     Active Substance: LOVASTATIN
     Route: 048
  11. LANTUS [Suspect]
     Active Substance: INSULIN GLARGINE
     Indication: DIABETES MELLITUS
     Dosage: 80 UNITS QAM, CHRONIC
     Route: 058
  12. ALPRAZOLAM. [Concomitant]
     Active Substance: ALPRAZOLAM
  13. SOMA [Concomitant]
     Active Substance: CARISOPRODOL
  14. METOPROLOL. [Concomitant]
     Active Substance: METOPROLOL

REACTIONS (3)
  - Overdose [Not Recovered/Not Resolved]
  - Mental status changes [Recovering/Resolving]
  - Hypoglycaemia [Recovered/Resolved]

NARRATIVE: CASE EVENT DATE: 20140907
